FAERS Safety Report 4341619-6 (Version None)
Quarter: 2004Q2

REPORT INFORMATION
  Report Type: 
  Country: None (occurrence: None)
  Receive Date: 20040420
  Receipt Date: 20030609
  Transmission Date: 20050107
  Serious: Yes (Hospitalization, Other)
  Sender: FDA-Public Use
  Company Number: 200315881GDDC

PATIENT
  Age: 83 Year
  Sex: Female
  Weight: 80 kg

DRUGS (10)
  1. LOVENOX [Suspect]
     Indication: CORONARY ARTERY DISEASE
     Route: 058
     Dates: start: 20030409, end: 20030413
  2. ASPIRIN [Suspect]
     Dosage: DOSE: UNK
  3. PLAVIX [Suspect]
     Dosage: DOSE: UNK
  4. ADVIL [Suspect]
     Dosage: DOSE: UNK
     Route: 048
  5. METOPROLOL [Concomitant]
     Route: 048
  6. FERROUS GLUCONATE [Concomitant]
  7. ALTACE [Concomitant]
  8. ZOCOR [Concomitant]
  9. METFORMIN [Concomitant]
  10. NORTRIPTYLINE HCL [Concomitant]

REACTIONS (6)
  - ANAEMIA [None]
  - ANEURYSM [None]
  - GASTRITIS [None]
  - MICROCYTIC ANAEMIA [None]
  - MYOCARDIAL INFARCTION [None]
  - VASCULAR PSEUDOANEURYSM [None]
